FAERS Safety Report 5393829-7 (Version None)
Quarter: 2007Q3

REPORT INFORMATION
  Report Type: 
  Country: None (occurrence: None)
  Receive Date: 20070723
  Receipt Date: 20070720
  Transmission Date: 20080115
  Serious: Yes (Hospitalization)
  Sender: FDA-Public Use
  Company Number: US-BRISTOL-MYERS SQUIBB COMPANY-13852199

PATIENT
  Age: 67 Year
  Sex: Female
  Weight: 60 kg

DRUGS (3)
  1. PACLITAXEL [Suspect]
     Indication: METASTATIC NEOPLASM
     Route: 042
     Dates: start: 20070329, end: 20070329
  2. CARBOPLATIN [Suspect]
     Indication: METASTATIC NEOPLASM
     Route: 042
     Dates: start: 20070329, end: 20070329
  3. ETOPOSIDE [Suspect]
     Indication: METASTATIC NEOPLASM
     Route: 048
     Dates: start: 20070406, end: 20070407

REACTIONS (3)
  - DEHYDRATION [None]
  - NAUSEA [None]
  - RENAL FAILURE ACUTE [None]
